FAERS Safety Report 9647139 (Version 1)
Quarter: 2013Q4

REPORT INFORMATION
  Report Type: Spontaneous
  Country: US (occurrence: US)
  Receive Date: 20131027
  Receipt Date: 20131027
  Transmission Date: 20140711
  Serious: No
  Sender: FDA-Public Use
  Company Number: US-PURDUE-USA-2013-0105405

PATIENT
  Sex: Male
  Weight: 68.27 kg

DRUGS (6)
  1. OXYCONTIN (NDA 22-272) [Suspect]
     Indication: PAIN IN EXTREMITY
     Dosage: 60 MG, QID
     Route: 048
     Dates: start: 2010
  2. OXYCONTIN (NDA 22-272) [Suspect]
     Indication: ARTHRALGIA
     Dosage: 40 MG, UNK
     Route: 048
     Dates: start: 20040204
  3. OXYCONTIN (NDA 22-272) [Suspect]
     Indication: BACK PAIN
  4. ROXICODONE [Concomitant]
     Indication: BREAKTHROUGH PAIN
     Dosage: 30 MG 5-6 TIMES A DAY PRN
     Route: 048
  5. VALIUM                             /00017001/ [Concomitant]
     Indication: MUSCLE SPASMS
     Dosage: 10 MG, PRN
     Route: 048
  6. MVI [Concomitant]
     Indication: PROPHYLAXIS
     Dosage: 1 UNK, UNK
     Route: 048

REACTIONS (6)
  - Weight decreased [Not Recovered/Not Resolved]
  - Drug effect decreased [Recovered/Resolved]
  - Therapeutic response delayed [Unknown]
  - Abdominal discomfort [Unknown]
  - Abdominal pain upper [Not Recovered/Not Resolved]
  - Product taste abnormal [Not Recovered/Not Resolved]
